FAERS Safety Report 20038302 (Version 2)
Quarter: 2021Q4

REPORT INFORMATION
  Report Type: Spontaneous
  Country: JP (occurrence: JP)
  Receive Date: 20211105
  Receipt Date: 20211115
  Transmission Date: 20220303
  Serious: Yes (Hospitalization)
  Sender: FDA-Public Use
  Company Number: JP-BAUSCH-BL-2021-036479

PATIENT
  Age: 67 Year
  Sex: Female

DRUGS (4)
  1. RIFAXIMIN [Suspect]
     Active Substance: RIFAXIMIN
     Indication: Product used for unknown indication
     Route: 048
  2. EZETIMIBE [Concomitant]
     Active Substance: EZETIMIBE
     Indication: Product used for unknown indication
     Route: 048
  3. ENTECAVIR HYDRATE [Concomitant]
     Indication: Product used for unknown indication
     Route: 048
  4. LACTITOL HYDRATE [Concomitant]
     Indication: Product used for unknown indication
     Route: 048

REACTIONS (3)
  - Gastric varices [Recovering/Resolving]
  - Splenomegaly [Unknown]
  - Vascular shunt [Unknown]
